FAERS Safety Report 15157657 (Version 1)
Quarter: 2018Q3

REPORT INFORMATION
  Report Type: Spontaneous
  Country: US (occurrence: US)
  Receive Date: 20180620
  Receipt Date: 20180620
  Transmission Date: 20181010
  Serious: Yes (Other)
  Sender: FDA-Public Use
  Company Number: None

PATIENT
  Age: 60 Year
  Sex: Female
  Weight: 127.8 kg

DRUGS (20)
  1. FOSINOPRIL [Concomitant]
     Active Substance: FOSINOPRIL
  2. TRAZODONE [Concomitant]
     Active Substance: TRAZODONE HYDROCHLORIDE
  3. TIZANIDINE. [Concomitant]
     Active Substance: TIZANIDINE
  4. OMEPRAZOLE. [Concomitant]
     Active Substance: OMEPRAZOLE
  5. TRIAMCINOLONE [Concomitant]
     Active Substance: TRIAMCINOLONE
  6. EFFEXOR [Suspect]
     Active Substance: VENLAFAXINE HYDROCHLORIDE
     Indication: ANXIETY
     Dosage: ?          QUANTITY:1.5 TABLET(S);?
     Route: 048
  7. VITAMIN E [Concomitant]
     Active Substance: .ALPHA.-TOCOPHEROL
  8. GABAPENTIN. [Concomitant]
     Active Substance: GABAPENTIN
  9. FUROSEMIDE. [Concomitant]
     Active Substance: FUROSEMIDE
  10. LIOTHYRONINE [Concomitant]
     Active Substance: LIOTHYRONINE
  11. CENTRUM SILVER VITAMIN [Concomitant]
  12. BUSPIRONE [Concomitant]
     Active Substance: BUSPIRONE HYDROCHLORIDE
  13. HYDROCORTISONE. [Concomitant]
     Active Substance: HYDROCORTISONE
  14. IRON [Concomitant]
     Active Substance: IRON
  15. EQUATE STOOL SOFTENER [Concomitant]
     Active Substance: CASANTHRANOL\DOCUSATE SODIUM
  16. STIMULANT LAZATIVE [Concomitant]
  17. VITAMIN D [Concomitant]
     Active Substance: CHOLECALCIFEROL
  18. ALPRAZOLAM. [Concomitant]
     Active Substance: ALPRAZOLAM
  19. TRAMADOL. [Concomitant]
     Active Substance: TRAMADOL
  20. KETOCONAZOLE. [Concomitant]
     Active Substance: KETOCONAZOLE

REACTIONS (4)
  - Rash pustular [None]
  - Pain [None]
  - Scar [None]
  - Anxiety [None]

NARRATIVE: CASE EVENT DATE: 20180101
